FAERS Safety Report 9607432 (Version 1)
Quarter: 2013Q4

REPORT INFORMATION
  Report Type: Spontaneous
  Country: US (occurrence: US)
  Receive Date: 20131009
  Receipt Date: 20131009
  Transmission Date: 20140711
  Serious: Yes (Hospitalization, Other)
  Sender: FDA-Public Use
  Company Number: US-SA-2013SA097186

PATIENT
  Age: 89 Year
  Sex: Female

DRUGS (1)
  1. AMARYL [Suspect]
     Route: 065

REACTIONS (2)
  - Convulsion [Unknown]
  - Diarrhoea [Unknown]
